FAERS Safety Report 8861103 (Version 1)
Quarter: 2012Q4

REPORT INFORMATION
  Report Type: Spontaneous
  Country: IL (occurrence: None)
  Receive Date: 20121023
  Receipt Date: 20121023
  Transmission Date: 20130627
  Serious: Yes (Hospitalization)
  Sender: FDA-Public Use
  Company Number: 2012-3952

PATIENT
  Age: 49 Year
  Sex: Male
  Weight: 60 kg

DRUGS (5)
  1. SOMATULINE AUTOGEL [Suspect]
     Indication: PANCREATIC NEUROENDOCRINE TUMOR
     Dosage: 60 mg, 1 in 28 D
     Dates: start: 201111
  2. SIMVASTATIN [Concomitant]
  3. DIAZEPAM [Concomitant]
  4. DIPYRONE (METAMIZOLE SODIUM) [Concomitant]
  5. PROPANOLOL (PROPRANOLOL) [Concomitant]

REACTIONS (12)
  - Pancreatic insufficiency [None]
  - Dizziness [None]
  - Balance disorder [None]
  - Vision blurred [None]
  - Heart rate irregular [None]
  - Dyspnoea [None]
  - Chest pain [None]
  - Chest discomfort [None]
  - Diarrhoea [None]
  - Pain in extremity [None]
  - Asthenia [None]
  - Fatigue [None]
